FAERS Safety Report 14505538 (Version 1)
Quarter: 2018Q1

REPORT INFORMATION
  Report Type: Spontaneous
  Country: US (occurrence: US)
  Receive Date: 20180208
  Receipt Date: 20180208
  Transmission Date: 20180509
  Serious: No
  Sender: FDA-Public Use
  Company Number: US-BAYER-2018-025949

PATIENT
  Sex: Female

DRUGS (15)
  1. XARELTO [Concomitant]
     Active Substance: RIVAROXABAN
  2. UROGESIC BLUE [Concomitant]
     Active Substance: HYOSCYAMINE SULFATE\METHENAMINE\METHYLENE BLUE\SODIUM PHOSPHATE, MONOBASIC
  3. ATIVAN [Concomitant]
     Active Substance: LORAZEPAM
  4. ULTER PLUS [Concomitant]
  5. ALEVE [Suspect]
     Active Substance: NAPROXEN SODIUM
     Dosage: UNK
  6. NIZORAL [Concomitant]
     Active Substance: KETOCONAZOLE
  7. BAYER ASPIRIN [Suspect]
     Active Substance: ASPIRIN
     Dosage: UNK
  8. AMBIEN [Concomitant]
     Active Substance: ZOLPIDEM TARTRATE
  9. VALIUM [Concomitant]
     Active Substance: DIAZEPAM
  10. FISH OIL [Concomitant]
     Active Substance: FISH OIL
  11. LYRICA [Concomitant]
     Active Substance: PREGABALIN
  12. REMERON [Concomitant]
     Active Substance: MIRTAZAPINE
  13. AMITRIPTYLLIN [Concomitant]
  14. VITAMIN E [Concomitant]
     Active Substance: .ALPHA.-TOCOPHEROL
  15. GENTEAL MILD [Concomitant]
     Active Substance: HYPROMELLOSE 2910 (4000 MPA.S)

REACTIONS (1)
  - Tinnitus [Unknown]
